FAERS Safety Report 21951160 (Version 2)
Quarter: 2023Q1

REPORT INFORMATION
  Report Type: Report from Study
  Country: DE (occurrence: DE)
  Receive Date: 20230203
  Receipt Date: 20230317
  Transmission Date: 20230418
  Serious: Yes (Other)
  Sender: FDA-Public Use
  Company Number: DE-TAKEDA-2023TUS009939

PATIENT
  Age: 67 Year
  Sex: Female
  Weight: 43.1 kg

DRUGS (3)
  1. MOBOCERTINIB [Suspect]
     Active Substance: MOBOCERTINIB
     Indication: Non-small cell lung cancer
     Dosage: 160 MILLIGRAM, QD
     Route: 048
     Dates: start: 20200914
  2. MOBOCERTINIB [Suspect]
     Active Substance: MOBOCERTINIB
     Dosage: 120 MILLIGRAM, QD
     Route: 048
     Dates: start: 20200914
  3. Novalgin [Concomitant]
     Indication: Pain
     Dosage: 400 MILLIGRAM
     Route: 048
     Dates: start: 20200914, end: 20220207

REACTIONS (7)
  - Electrocardiogram ST segment depression [Recovering/Resolving]
  - Hypokalaemia [Recovering/Resolving]
  - Skin irritation [Recovered/Resolved]
  - Hypertension [Not Recovered/Not Resolved]
  - Anaemia [Recovered/Resolved]
  - Diarrhoea [Recovering/Resolving]
  - Pain of skin [Recovered/Resolved]

NARRATIVE: CASE EVENT DATE: 20200923
